FAERS Safety Report 4337769-0 (Version None)
Quarter: 2004Q2

REPORT INFORMATION
  Report Type: 
  Country: None (occurrence: None)
  Receive Date: 20040413
  Receipt Date: 20040406
  Transmission Date: 20050107
  Serious: Yes (Other)
  Sender: FDA-Public Use
  Company Number: PHEH2004US03979

PATIENT
  Sex: Female

DRUGS (2)
  1. NEORAL [Suspect]
     Route: 048
  2. KEFLEX [Suspect]
     Route: 048

REACTIONS (2)
  - DRUG INTERACTION [None]
  - NEPHROPATHY TOXIC [None]
